FAERS Safety Report 13988860 (Version 1)
Quarter: 2017Q3

REPORT INFORMATION
  Report Type: Spontaneous
  Country: CA (occurrence: CA)
  Receive Date: 20170919
  Receipt Date: 20170919
  Transmission Date: 20171128
  Serious: Yes (Other)
  Sender: FDA-Public Use
  Company Number: CA-TEVA-807433ACC

PATIENT
  Age: 4 Year
  Sex: Male
  Weight: 16 kg

DRUGS (11)
  1. ETOPOSIDE INJECTION, USP [Concomitant]
     Active Substance: ETOPOSIDE
  2. THIOTEPA. [Concomitant]
     Active Substance: THIOTEPA
  3. TOPOTECAN [Concomitant]
     Active Substance: TOPOTECAN HYDROCHLORIDE
  4. CARBOPLATIN. [Concomitant]
     Active Substance: CARBOPLATIN
  5. CH14.18 [Concomitant]
     Active Substance: DINUTUXIMAB
  6. CISPLATIN INJECTION [Concomitant]
     Active Substance: CISPLATIN
  7. CYCLOPHOSPHAMIDE. [Concomitant]
     Active Substance: CYCLOPHOSPHAMIDE
  8. MELPHALAN. [Concomitant]
     Active Substance: MELPHALAN
  9. INTERLEUKIN-2 [Concomitant]
     Active Substance: ALDESLEUKIN
  10. VINCRISTINE SULFATE. [Suspect]
     Active Substance: VINCRISTINE SULFATE
     Indication: NEUROBLASTOMA
     Route: 065
  11. DOXORUBICIN LIPOSOMAL [Concomitant]
     Active Substance: DOXORUBICIN

REACTIONS (11)
  - Musculoskeletal stiffness [Recovering/Resolving]
  - Movement disorder [Recovering/Resolving]
  - Posture abnormal [Recovering/Resolving]
  - Arthralgia [Recovering/Resolving]
  - Fine motor delay [Recovering/Resolving]
  - Motor developmental delay [Recovering/Resolving]
  - Myopathy [Recovering/Resolving]
  - Neuropathy peripheral [Recovering/Resolving]
  - Asthenia [Recovering/Resolving]
  - Fine motor skill dysfunction [Recovering/Resolving]
  - Pain in extremity [Recovering/Resolving]
